FAERS Safety Report 9796160 (Version 1)
Quarter: 2014Q1

REPORT INFORMATION
  Report Type: Spontaneous
  Country: US (occurrence: US)
  Receive Date: 20140103
  Receipt Date: 20140103
  Transmission Date: 20141002
  Serious: No
  Sender: FDA-Public Use
  Company Number: US-BAXTER-2013BAX051285

PATIENT
  Age: 64 Year
  Sex: Female
  Weight: 53.5 kg

DRUGS (8)
  1. GAMMAGARD LIQUID [Suspect]
     Indication: IMMUNODEFICIENCY COMMON VARIABLE
     Dosage: 5G/50CC
     Route: 058
     Dates: start: 20131206, end: 20131206
  2. GAMMAGARD LIQUID [Suspect]
     Dosage: 5G/50CC
     Route: 058
     Dates: start: 20131212, end: 20131212
  3. BENADRYL [Concomitant]
     Indication: PREMEDICATION
     Route: 048
     Dates: start: 20131206, end: 20131206
  4. TYLENOL [Concomitant]
     Indication: PREMEDICATION
     Route: 048
     Dates: start: 20131206, end: 20131206
  5. TYLENOL [Concomitant]
     Route: 048
     Dates: start: 20131212, end: 20131212
  6. SYNTHROID [Concomitant]
     Indication: HYPOTHYROIDISM
     Route: 048
  7. LYRICA [Concomitant]
     Indication: NEURALGIA
     Route: 048
  8. TIZANIDINE [Concomitant]
     Indication: MUSCLE SPASMS
     Route: 048

REACTIONS (4)
  - Headache [Recovered/Resolved]
  - Hyperhidrosis [Recovered/Resolved]
  - Fatigue [Recovered/Resolved]
  - Nausea [Recovered/Resolved]
